FAERS Safety Report 4559170-7 (Version None)
Quarter: 2005Q1

REPORT INFORMATION
  Report Type: 
  Country: None (occurrence: None)
  Receive Date: 20050120
  Receipt Date: 20050120
  Transmission Date: 20050727
  Serious: Yes (Other)
  Sender: FDA-Public Use
  Company Number: None

PATIENT

DRUGS (2)
  1. MEMANTINE HCL [Suspect]
     Dosage: 5 MG PO TID
     Route: 048
  2. RISPERDAL [Suspect]
     Dosage: 1 MG PO QHS
     Route: 048

REACTIONS (3)
  - AUTONOMIC NERVOUS SYSTEM IMBALANCE [None]
  - FALL [None]
  - HUMERUS FRACTURE [None]
